FAERS Safety Report 12834199 (Version 1)
Quarter: 2016Q4

REPORT INFORMATION
  Report Type: Spontaneous
  Country: AT (occurrence: AT)
  Receive Date: 20161010
  Receipt Date: 20161010
  Transmission Date: 20170207
  Serious: Yes (Hospitalization, Other)
  Sender: FDA-Public Use
  Company Number: AT-BRISTOL-MYERS SQUIBB COMPANY-BMS-2016-082675

PATIENT
  Age: 71 Year
  Sex: Male

DRUGS (1)
  1. OPDIVO [Suspect]
     Active Substance: NIVOLUMAB
     Indication: RENAL CELL CARCINOMA
     Dosage: UNK UNK, Q2WK
     Route: 042

REACTIONS (7)
  - Gait disturbance [Unknown]
  - Chills [Unknown]
  - Fatigue [Unknown]
  - Dysphagia [Unknown]
  - Blood calcium increased [Unknown]
  - Malignant neoplasm progression [Unknown]
  - Oesophagitis [Unknown]
